FAERS Safety Report 8901685 (Version 3)
Quarter: 2013Q1

REPORT INFORMATION
  Report Type: Spontaneous
  Country: NL (occurrence: None)
  Receive Date: 20121101
  Receipt Date: 20121129
  Transmission Date: 20140127
  Serious: Yes (Other)
  Sender: FDA-Public Use
  Company Number: NL-1194788

PATIENT
  Age: 74 Year
  Sex: Male
  Weight: 125 kg

DRUGS (4)
  1. AZOPT 1% [Suspect]
     Dosage: OU
     Route: 047
     Dates: start: 2010
  2. DUOTRAV OPHTHALMIC SOLUTION (DUO-TRAVATAN) [Suspect]
     Dosage: OU
     Route: 047
     Dates: start: 2010, end: 201209
  3. ACARBOSA MYLAN [Concomitant]
  4. LATANOPROST [Concomitant]

REACTIONS (2)
  - Ocular hyperaemia [None]
  - VIIth nerve paralysis [None]
